FAERS Safety Report 7363021-5 (Version None)
Quarter: 2011Q1

REPORT INFORMATION
  Report Type: 
  Country: None (occurrence: None)
  Receive Date: 20110321
  Receipt Date: 20110315
  Transmission Date: 20110831
  Serious: No
  Sender: FDA-Public Use
  Company Number: US-PFIZER INC-2011038182

PATIENT
  Sex: Male
  Weight: 85.261 kg

DRUGS (8)
  1. LANTUS [Concomitant]
     Indication: DIABETES MELLITUS
     Dosage: 10 ML, UNK
  2. DOXAZOSIN [Concomitant]
     Indication: HYPERTENSION
     Dosage: 2 MG, 1X/DAY
     Route: 048
  3. GLIPIZIDE [Concomitant]
     Indication: DIABETES MELLITUS
     Dosage: 5 MG, UNK
     Route: 048
  4. OXYCODONE [Concomitant]
     Indication: PAIN
     Dosage: 10/325MG 2-4 TABS/DAY FOR PAIN
     Route: 048
  5. TORISEL [Suspect]
     Indication: RENAL CELL CARCINOMA
     Dosage: UNK
     Dates: start: 20101112
  6. MORPHINE [Concomitant]
     Indication: PAIN
     Dosage: 30 MG, 2X/DAY
     Route: 048
  7. LEVOTHYROXINE [Concomitant]
     Indication: THYROID DISORDER
     Dosage: 125 UG, 1X/DAY
     Route: 048
  8. ATENOLOL [Concomitant]
     Indication: HYPERTENSION
     Dosage: 100 MG, 1X/DAY
     Route: 048

REACTIONS (9)
  - WEIGHT DECREASED [None]
  - NAUSEA [None]
  - ACNE [None]
  - BLOODY DISCHARGE [None]
  - DRY THROAT [None]
  - VISUAL IMPAIRMENT [None]
  - NEOPLASM SKIN [None]
  - RED BLOOD CELL COUNT ABNORMAL [None]
  - APHONIA [None]
